FAERS Safety Report 24402939 (Version 1)
Quarter: 2024Q4

REPORT INFORMATION
  Report Type: Spontaneous
  Country: FR (occurrence: FR)
  Receive Date: 20241007
  Receipt Date: 20241007
  Transmission Date: 20250115
  Serious: Yes (Hospitalization)
  Sender: CHEPLAPHARM
  Company Number: None

PATIENT
  Age: 7 Year
  Sex: Male

DRUGS (4)
  1. OLANZAPINE [Suspect]
     Active Substance: OLANZAPINE
     Indication: Behaviour disorder
     Dosage: 5 MG/D?DAILY DOSE: 5 MILLIGRAM
     Route: 048
     Dates: start: 20240715, end: 20240801
  2. ARIPIPRAZOLE [Concomitant]
     Active Substance: ARIPIPRAZOLE
     Indication: Product used for unknown indication
     Dosage: UNKNOWN DOSE?DAILY DOSE: 5 MILLIGRAM
     Dates: start: 20240516
  3. CONCERTA [Concomitant]
     Active Substance: METHYLPHENIDATE HYDROCHLORIDE
     Dosage: DAILY DOSE: 18 MILLIGRAM
     Dates: start: 20240516
  4. MELATONIN [Concomitant]
     Active Substance: MELATONIN
     Dosage: AT BEDTIME?DAILY DOSE: 2 MILLIGRAM

REACTIONS (2)
  - Condition aggravated [Not Recovered/Not Resolved]
  - Product dispensing error [Recovered/Resolved]

NARRATIVE: CASE EVENT DATE: 20240715
